FAERS Safety Report 8506088 (Version 2)
Quarter: 2013Q1

REPORT INFORMATION
  Report Type: Spontaneous
  Country: US (occurrence: US)
  Receive Date: 20120412
  Receipt Date: 20130115
  Transmission Date: 20140127
  Serious: Yes (Hospitalization, Other)
  Sender: FDA-Public Use
  Company Number: US-PFIZER INC-2012090520

PATIENT
  Age: 72 Year
  Sex: Male
  Weight: 120 kg

DRUGS (6)
  1. LYRICA [Suspect]
     Indication: NEUROPATHY PERIPHERAL
     Dosage: 100 MG, 2X/DAY
     Dates: start: 2011, end: 201203
  2. LYRICA [Suspect]
     Indication: DIABETIC NEUROPATHY
     Dosage: 100 MG, 2X/DAY
  3. NORVASC [Concomitant]
     Indication: HYPERTENSION
     Dosage: 10 MG DAILY
  4. SEROQUEL [Concomitant]
     Indication: SLEEP DISORDER
     Dosage: 100 MG DAILY AT BED TIME
  5. NOVOLOG [Concomitant]
     Indication: DIABETES MELLITUS
     Dosage: 5 IU (BEFORE MEALS), UNK
  6. LANTUS [Concomitant]
     Indication: DIABETES MELLITUS
     Dosage: 17 IU (AT BED TIME), UNK

REACTIONS (2)
  - Colon cancer [Unknown]
  - Pain in extremity [Not Recovered/Not Resolved]
